FAERS Safety Report 4510272-0 (Version None)
Quarter: 2004Q4

REPORT INFORMATION
  Report Type: 
  Country: None (occurrence: None)
  Receive Date: 20041119
  Receipt Date: 20041028
  Transmission Date: 20050328
  Serious: Yes (Hospitalization)
  Sender: FDA-Public Use
  Company Number: DE_041014589

PATIENT
  Age: 52 Year
  Sex: Female
  Weight: 61 kg

DRUGS (7)
  1. GEMZAR [Suspect]
     Indication: PANCREATIC CARCINOMA
     Dosage: 1700 MG
     Dates: start: 20040319, end: 20040430
  2. INSULIN [Concomitant]
  3. DEXAMETHASONE [Concomitant]
  4. ALPROSTADIL [Concomitant]
  5. HEPARIN [Concomitant]
  6. CEFAZOLIN [Concomitant]
  7. KEVATRIL (GRANISETRON HYDROCHLORIDE) [Concomitant]

REACTIONS (13)
  - ANAEMIA [None]
  - ARM AMPUTATION [None]
  - ARTERIAL OCCLUSIVE DISEASE [None]
  - ARTERIOSCLEROSIS [None]
  - BLOOD BLISTER [None]
  - HYPOAESTHESIA [None]
  - HYPOKALAEMIA [None]
  - ONYCHOMADESIS [None]
  - PAIN IN EXTREMITY [None]
  - PLATELET COUNT DECREASED [None]
  - PLATELET COUNT INCREASED [None]
  - VASCULAR CALCIFICATION [None]
  - VASCULITIS [None]
